FAERS Safety Report 6722530-X (Version None)
Quarter: 2010Q2

REPORT INFORMATION
  Report Type: 
  Country: None (occurrence: None)
  Receive Date: 20100512
  Receipt Date: 20100506
  Transmission Date: 20101027
  Serious: Yes (Other)
  Sender: FDA-Public Use
  Company Number: IE-ASTRAZENECA-2010SE19687

PATIENT
  Age: 22 Year
  Sex: Female
  Weight: 69.9 kg

DRUGS (3)
  1. SYMBICORT [Suspect]
     Dosage: 200/6 2 PUFFS
     Route: 055
     Dates: start: 20100423, end: 20100430
  2. YASMINELLE [Concomitant]
     Indication: ORAL CONTRACEPTION
     Route: 048
     Dates: start: 20090624
  3. VENTOLIN [Concomitant]
     Indication: ASTHMA
     Dosage: 2 PUFFS
     Route: 055

REACTIONS (2)
  - CONDITION AGGRAVATED [None]
  - DRUG INEFFECTIVE [None]
